FAERS Safety Report 7389553-1 (Version None)
Quarter: 2011Q2

REPORT INFORMATION
  Report Type: 
  Country: None (occurrence: None)
  Receive Date: 20110401
  Receipt Date: 20110321
  Transmission Date: 20111010
  Serious: Yes (Hospitalization)
  Sender: FDA-Public Use
  Company Number: PHHY2011US23920

PATIENT
  Sex: Female

DRUGS (11)
  1. ZETIA [Concomitant]
  2. FORADIL [Concomitant]
  3. DIOVAN [Suspect]
     Dosage: 160 MG, QD
  4. VITAMIN D [Concomitant]
     Dosage: 2000 MG, UNK
  5. ASCORBIC ACID [Concomitant]
     Dosage: 500 MG, UNK
  6. TENORMIN [Concomitant]
  7. SPIRIVA [Concomitant]
  8. PLAVIX [Concomitant]
  9. PREDNISONE [Concomitant]
     Dosage: 15 MG, UNK
  10. CALCIUM [Concomitant]
  11. LASIX [Concomitant]

REACTIONS (6)
  - FEELING ABNORMAL [None]
  - BLOOD PRESSURE DECREASED [None]
  - NAUSEA [None]
  - VOMITING [None]
  - DIARRHOEA [None]
  - PNEUMONIA [None]
